FAERS Safety Report 8399106-4 (Version None)
Quarter: 2012Q2

REPORT INFORMATION
  Report Type: 
  Country: None (occurrence: None)
  Receive Date: 20120531
  Receipt Date: 20120524
  Transmission Date: 20120825
  Serious: Yes (Hospitalization)
  Sender: FDA-Public Use
  Company Number: US-BAYER-2012-044779

PATIENT
  Age: 45 Year
  Sex: Female
  Weight: 140.59 kg

DRUGS (20)
  1. ALBUTEROL [Concomitant]
     Indication: ASTHMA
  2. MULTI-VITAMIN [Concomitant]
     Dosage: UNK, QD
     Route: 048
     Dates: start: 20100117
  3. ZYRTEC [Concomitant]
     Indication: MULTIPLE ALLERGIES
     Dosage: UNK UNK, PRN
     Route: 048
     Dates: start: 20100223
  4. CITALOPRAM [Concomitant]
     Indication: DEPRESSION
     Dosage: 40 MG, UNK
     Route: 048
     Dates: start: 20100223
  5. CALCIUM [Concomitant]
     Dosage: 1000 MG, QD
     Route: 048
     Dates: start: 20100118
  6. METOPROLOL TARTRATE [Concomitant]
     Dosage: 200 MG, QD
     Route: 048
     Dates: start: 20100223
  7. OMEPRAZOLE [Concomitant]
     Indication: GASTROOESOPHAGEAL REFLUX DISEASE
     Dosage: 20 MG, QD
     Route: 048
     Dates: start: 20091207
  8. ALBUTEROL [Concomitant]
     Indication: MULTIPLE ALLERGIES
     Dosage: UNK UNK, Q1MON
     Route: 048
     Dates: start: 20091207
  9. LISINOPRIL [Concomitant]
     Indication: HYPERTENSION
     Dosage: 10 MG, QD
     Route: 048
     Dates: start: 20091207
  10. DIETARY SUPPLEMENTS [Concomitant]
     Dosage: UNK
     Route: 048
     Dates: start: 20100202
  11. HERBAL PREPARATION [Concomitant]
     Dosage: UNK
     Route: 048
     Dates: start: 20100202
  12. METOPROLOL TARTRATE [Concomitant]
     Indication: HYPERTENSION
     Dosage: 200 MG, QD
     Route: 048
     Dates: start: 20091207
  13. OMEPRAZOLE [Concomitant]
     Dosage: 20 MG, QD
     Route: 048
     Dates: start: 20100223
  14. PERCOCET [Concomitant]
     Dosage: 5-325 MG
     Route: 048
     Dates: start: 20100223
  15. ASPIRIN [Concomitant]
     Dosage: 81 MG, UNK
     Route: 048
     Dates: start: 20100223
  16. MULTI-VITAMIN [Concomitant]
     Dosage: UNK UNK, QD
     Route: 048
     Dates: start: 20091204
  17. FLUTICASONE FUROATE [Concomitant]
     Dosage: 50 MCG NASAL INHALED
     Route: 045
     Dates: start: 20100223
  18. YAZ [Suspect]
     Indication: PREMENSTRUAL SYNDROME
     Dosage: UNK
     Route: 048
     Dates: start: 20100126, end: 20100224
  19. VITAMIN D [Concomitant]
     Dosage: 1000 IU, QD
     Route: 048
     Dates: start: 20091204
  20. PERCOCET [Concomitant]
     Dosage: 5-325 MG
     Route: 048
     Dates: start: 20091216

REACTIONS (7)
  - DYSPNOEA [None]
  - CHEST PAIN [None]
  - PAIN [None]
  - DEPRESSION [None]
  - PULMONARY EMBOLISM [None]
  - ANXIETY DISORDER [None]
  - INJURY [None]
